FAERS Safety Report 16460359 (Version 1)
Quarter: 2019Q2

REPORT INFORMATION
  Report Type: Spontaneous
  Country: CN (occurrence: CN)
  Receive Date: 20190620
  Receipt Date: 20190620
  Transmission Date: 20190711
  Serious: Yes (Hospitalization)
  Sender: FDA-Public Use
  Company Number: CN-ASTRAZENECA-2019SE88513

PATIENT
  Age: 51 Year
  Sex: Female

DRUGS (9)
  1. MOXIFLOXACIN. [Concomitant]
     Active Substance: MOXIFLOXACIN
  2. LEVOTHYROXINE. [Concomitant]
     Active Substance: LEVOTHYROXINE
  3. ROSUVASTATIN CALCIUM. [Suspect]
     Active Substance: ROSUVASTATIN CALCIUM
     Indication: HYPERLIPIDAEMIA
     Route: 048
     Dates: start: 20180627
  4. LEVOFLOXACIN. [Concomitant]
     Active Substance: LEVOFLOXACIN
  5. ACETYLCHOLINE [Concomitant]
     Active Substance: ACETYLCHOLINE CHLORIDE
  6. ACETYLCYSTEINE. [Concomitant]
     Active Substance: ACETYLCYSTEINE
  7. EZETIMIBE. [Concomitant]
     Active Substance: EZETIMIBE
  8. ROSUVASTATIN CALCIUM. [Suspect]
     Active Substance: ROSUVASTATIN CALCIUM
     Indication: HYPERLIPIDAEMIA
     Route: 048
     Dates: start: 20180620, end: 20180627
  9. ASPIRIN ENTERIC-COATED [Concomitant]

REACTIONS (2)
  - Dizziness [Recovering/Resolving]
  - Drug-induced liver injury [Recovering/Resolving]
